FAERS Safety Report 19709693 (Version 4)
Quarter: 2021Q3

REPORT INFORMATION
  Report Type: Spontaneous
  Country: PL (occurrence: PL)
  Receive Date: 20210816
  Receipt Date: 20210928
  Transmission Date: 20211014
  Serious: Yes (Death, Other)
  Sender: FDA-Public Use
  Company Number: PL-PFIZER INC-202100987380

PATIENT
  Age: 5 Year
  Sex: Female

DRUGS (5)
  1. IFOSFAMIDE. [Suspect]
     Active Substance: IFOSFAMIDE
     Indication: NEPHROBLASTOMA
     Dosage: CYCLIC, 2 CYCLES, SECOND?LINE CHEMOTHERAPY
  2. CISPLATIN. [Suspect]
     Active Substance: CISPLATIN
     Indication: NEPHROBLASTOMA
     Dosage: 2 CYCLES, SECOND?LINE CHEMOTHERAPY, CYCLIC
  3. ETOPOSIDE. [Suspect]
     Active Substance: ETOPOSIDE
     Indication: NEPHROBLASTOMA
     Dosage: CYCLIC,  2 CYCLES, SECOND?LINE CHEMOTHERAPY
  4. CARBOPLATIN. [Suspect]
     Active Substance: CARBOPLATIN
     Indication: NEPHROBLASTOMA
     Dosage: 2 CYCLES, SECOND?LINE CHEMOTHERAPY
  5. CYCLOPHOSPHAMIDE. [Suspect]
     Active Substance: CYCLOPHOSPHAMIDE
     Indication: NEPHROBLASTOMA
     Dosage: CYCLIC, 2 CYCLES, SECOND?LINE CHEMOTHERAPY

REACTIONS (3)
  - Bone marrow failure [Unknown]
  - Death [Fatal]
  - Fanconi syndrome [Unknown]
